FAERS Safety Report 5953111-3 (Version None)
Quarter: 2008Q4

REPORT INFORMATION
  Report Type: 
  Country: None (occurrence: None)
  Receive Date: 20081114
  Receipt Date: 20081105
  Transmission Date: 20090506
  Serious: Yes (Disabling, Other)
  Sender: FDA-Public Use
  Company Number: NL-AMGEN-US318217

PATIENT
  Age: 49 Year
  Sex: Male
  Weight: 85 kg

DRUGS (5)
  1. ENBREL [Suspect]
     Indication: RHEUMATOID ARTHRITIS
     Dosage: UNKNOWN
     Route: 030
     Dates: start: 20080101, end: 20081105
  2. ACTONEL [Concomitant]
     Indication: OSTEOPOROSIS
  3. ARCOXIA [Concomitant]
     Indication: RHEUMATOID ARTHRITIS
  4. PAROXETINE HCL [Concomitant]
     Indication: DEPRESSION
  5. DICLOFENAC SODIUM [Concomitant]
     Indication: RHEUMATOID ARTHRITIS

REACTIONS (1)
  - SUDDEN HEARING LOSS [None]
